FAERS Safety Report 20096421 (Version 2)
Quarter: 2021Q4

REPORT INFORMATION
  Report Type: Spontaneous
  Country: US (occurrence: US)
  Receive Date: 20211122
  Receipt Date: 20211220
  Transmission Date: 20220303
  Serious: Yes (Other)
  Sender: FDA-Public Use
  Company Number: US-BAYER-2021A251526

PATIENT
  Age: 34 Year
  Sex: Female
  Weight: 51.247 kg

DRUGS (1)
  1. MIRENA [Suspect]
     Active Substance: LEVONORGESTREL
     Indication: Contraception
     Dosage: 20?G/DAY
     Route: 015
     Dates: start: 20171002, end: 20171102

REACTIONS (4)
  - Device dislocation [Recovered/Resolved]
  - Post procedural haemorrhage [None]
  - Abdominal pain [None]
  - Medical device discomfort [None]

NARRATIVE: CASE EVENT DATE: 20170101
